FAERS Safety Report 15333445 (Version 1)
Quarter: 2018Q3

REPORT INFORMATION
  Report Type: Spontaneous
  Country: US (occurrence: US)
  Receive Date: 20180824
  Receipt Date: 20180824
  Transmission Date: 20181010
  Serious: Yes (Death, Other)
  Sender: FDA-Public Use
  Company Number: None

PATIENT
  Age: 78 Year
  Sex: Male
  Weight: 78.5 kg

DRUGS (4)
  1. ELIQUIS [Concomitant]
     Active Substance: APIXABAN
     Dates: start: 20180529, end: 20180707
  2. ELIQUIS [Suspect]
     Active Substance: APIXABAN
     Indication: ATRIAL FIBRILLATION
     Route: 048
     Dates: end: 20180707
  3. CLARITHROMYCIN. [Suspect]
     Active Substance: CLARITHROMYCIN
     Indication: HELICOBACTER INFECTION
     Route: 048
     Dates: end: 20180708
  4. CLARITHROMYCIN. [Concomitant]
     Active Substance: CLARITHROMYCIN
     Dates: start: 20180606, end: 20180708

REACTIONS (17)
  - Pulmonary oedema [None]
  - Catheter site haemorrhage [None]
  - Epistaxis [None]
  - International normalised ratio increased [None]
  - Cardiogenic shock [None]
  - Unresponsive to stimuli [None]
  - Toxicity to various agents [None]
  - Drug interaction [None]
  - Respiratory distress [None]
  - Coagulopathy [None]
  - Haemorrhage [None]
  - Therapy change [None]
  - Shock haemorrhagic [None]
  - Dyspnoea [None]
  - Anaemia [None]
  - Pulmonary haemorrhage [None]
  - Haemodynamic instability [None]

NARRATIVE: CASE EVENT DATE: 20180708
